FAERS Safety Report 6657388-0 (Version None)
Quarter: 2010Q1

REPORT INFORMATION
  Report Type: 
  Country: None (occurrence: None)
  Receive Date: 20100325
  Receipt Date: 20100319
  Transmission Date: 20100710
  Serious: Yes (Death, Life-Threatening, Hospitalization)
  Sender: FDA-Public Use
  Company Number: 465885

PATIENT
  Age: 74 Year
  Sex: Male

DRUGS (17)
  1. CYTARABINE [Suspect]
     Indication: ACUTE MYELOID LEUKAEMIA
     Dosage: 20 MG/M2, SUBCUTANEOUS
     Route: 058
     Dates: start: 20070806, end: 20071115
  2. KLOR-CON [Concomitant]
  3. METFORMIN HCL [Concomitant]
  4. METOPROLOL TARTRATE [Concomitant]
  5. FAMOTIDINE [Concomitant]
  6. . [Concomitant]
  7. LISINOPRIL [Concomitant]
  8. ACTOS [Concomitant]
  9. PAXIL [Concomitant]
  10. KEPPRA [Concomitant]
  11. LANTUS [Concomitant]
  12. DILANTIN [Concomitant]
  13. . [Concomitant]
  14. ALTACE [Concomitant]
  15. PROTONIX /01263201/ [Concomitant]
  16. LASIX [Concomitant]
  17. K-DUR [Concomitant]

REACTIONS (24)
  - ANAEMIA [None]
  - ATRIAL FIBRILLATION [None]
  - BLAST CELL COUNT INCREASED [None]
  - BLOOD BILIRUBIN INCREASED [None]
  - BLOOD GLUCOSE INCREASED [None]
  - BLOOD PRESSURE DIASTOLIC DECREASED [None]
  - BLOOD UREA INCREASED [None]
  - DECREASED APPETITE [None]
  - DEHYDRATION [None]
  - DISORIENTATION [None]
  - ELECTROCARDIOGRAM ST-T CHANGE [None]
  - GENERAL PHYSICAL HEALTH DETERIORATION [None]
  - HYPERTENSION [None]
  - ISCHAEMIA [None]
  - LEFT VENTRICULAR HYPERTROPHY [None]
  - MENTAL STATUS CHANGES [None]
  - NAUSEA [None]
  - PLATELET COUNT DECREASED [None]
  - PNEUMONIA [None]
  - RESPIRATORY FAILURE [None]
  - RESPIRATORY RATE INCREASED [None]
  - SINUS TACHYCARDIA [None]
  - SUBDURAL HAEMATOMA [None]
  - SUPRAVENTRICULAR EXTRASYSTOLES [None]
